FAERS Safety Report 23435349 (Version 2)
Quarter: 2024Q1

REPORT INFORMATION
  Report Type: Report from Study
  Country: US (occurrence: US)
  Receive Date: 20240123
  Receipt Date: 20240307
  Transmission Date: 20240409
  Serious: Yes (Hospitalization, Other)
  Sender: FDA-Public Use
  Company Number: US-ABBVIE-5596088

PATIENT
  Age: 60 Year
  Sex: Male

DRUGS (3)
  1. RINVOQ [Suspect]
     Active Substance: UPADACITINIB
     Indication: Crohn^s disease
     Route: 048
     Dates: start: 20231222
  2. RINVOQ [Suspect]
     Active Substance: UPADACITINIB
     Indication: Crohn^s disease
     Route: 048
     Dates: start: 20231222
  3. CARAFATE [Concomitant]
     Active Substance: SUCRALFATE
     Indication: Hyperchlorhydria

REACTIONS (4)
  - Haemoglobin abnormal [Unknown]
  - Anaemia of chronic disease [Unknown]
  - Drug ineffective [Recovering/Resolving]
  - Product residue present [Not Recovered/Not Resolved]

NARRATIVE: CASE EVENT DATE: 20240110
